FAERS Safety Report 17020336 (Version 2)
Quarter: 2019Q4

REPORT INFORMATION
  Report Type: Spontaneous
  Country: JP (occurrence: JP)
  Receive Date: 20191112
  Receipt Date: 20191115
  Transmission Date: 20200122
  Serious: Yes (Other)
  Sender: FDA-Public Use
  Company Number: JP-PFIZER INC-2019480766

PATIENT
  Age: 30 Year
  Sex: Male

DRUGS (5)
  1. REBAMIPIDE [Concomitant]
     Active Substance: REBAMIPIDE
     Dosage: 200 MG, DAILY
     Route: 048
     Dates: start: 20190731, end: 20190806
  2. ZEPOLAS [Concomitant]
     Dosage: 40 MG, DAILY
     Route: 061
     Dates: start: 20190731, end: 20190806
  3. LYRICA [Suspect]
     Active Substance: PREGABALIN
     Indication: NEURALGIA
     Dosage: 100 MG, DAILY
     Route: 048
     Dates: start: 20190820, end: 20190828
  4. LYRICA [Suspect]
     Active Substance: PREGABALIN
     Indication: INTERVERTEBRAL DISC PROTRUSION
     Dosage: 150 MG, DAILY
     Route: 048
     Dates: start: 20190829, end: 20190901
  5. CELECOX [Concomitant]
     Active Substance: CELECOXIB
     Dosage: 200 MG, DAILY
     Route: 048
     Dates: start: 20190731, end: 20190806

REACTIONS (3)
  - Deep vein thrombosis [Unknown]
  - Peripheral swelling [Unknown]
  - Oedema [Unknown]

NARRATIVE: CASE EVENT DATE: 2019
